FAERS Safety Report 8001781-0 (Version None)
Quarter: 2011Q4

REPORT INFORMATION
  Report Type: 
  Country: None (occurrence: None)
  Receive Date: 20111220
  Receipt Date: 20111207
  Transmission Date: 20120403
  Serious: Yes (Other)
  Sender: FDA-Public Use
  Company Number: US-2011-10338

PATIENT
  Age: 62 Year
  Sex: Male

DRUGS (8)
  1. ETOPOSIDE [Concomitant]
  2. CYCLOPHOSPHAMIDE [Concomitant]
  3. TAMSULOSIN HCL [Concomitant]
  4. ACYCLOVIR [Concomitant]
  5. ROXICODONE [Concomitant]
  6. OXYCONTIN [Concomitant]
  7. BUSULFAN [Suspect]
     Dosage: 50 MG MILLIGRAM(S) INTRAVENOUS
     Route: 042
     Dates: start: 20110321, end: 20110321
  8. BUSULFAN [Suspect]
     Dosage: 50 MG MILLIGRAM(S) INTRAVENOUS
     Route: 042
     Dates: start: 20110324, end: 20110327

REACTIONS (1)
  - DELAYED ENGRAFTMENT [None]
